FAERS Safety Report 9299930 (Version 1)
Quarter: 2012Q4

REPORT INFORMATION
  Report Type: Spontaneous
  Country: GB (occurrence: None)
  Receive Date: 20121121
  Receipt Date: 20121121
  Transmission Date: 20130627
  Serious: Yes (Disabling)
  Sender: FDA-Public Use
  Company Number: 2012SA077250

PATIENT
  Age: 67 Year
  Sex: Female
  Weight: 79 kg

DRUGS (10)
  1. LANTUS SOLOSTAR [Suspect]
     Indication: DRUG USE FOR UNKNOWN INDICATION
     Dosage: 10 units
     Route: 058
     Dates: start: 20121011, end: 20121017
  2. SOLOSTAR (SOLOSTAR) [Suspect]
     Indication: DEVICE THERAPY
     Dates: start: 20121011, end: 20121017
  3. FOLIC ACID [Concomitant]
  4. OMEPRAZOLE [Concomitant]
  5. LOSARTAN [Concomitant]
  6. POTASSIUM [Concomitant]
  7. BENDROFLUMETHIAZIDE [Concomitant]
  8. EZETROL [Concomitant]
  9. ASPIRIN [Concomitant]
  10. METHOTREXATE [Concomitant]

REACTIONS (9)
  - Vision blurred [None]
  - Nausea [None]
  - Abdominal pain upper [None]
  - Gastric disorder [None]
  - Abdominal distension [None]
  - Crying [None]
  - Malaise [None]
  - Confusional state [None]
  - Blood glucose increased [None]
